FAERS Safety Report 16564443 (Version 1)
Quarter: 2019Q3

REPORT INFORMATION
  Report Type: Spontaneous
  Country: US (occurrence: US)
  Receive Date: 20190711
  Receipt Date: 20190711
  Transmission Date: 20191004
  Serious: Yes (Other)
  Sender: FDA-Public Use
  Company Number: None

PATIENT
  Age: 46 Year
  Sex: Female
  Weight: 68.85 kg

DRUGS (1)
  1. LORSARTAN [Suspect]
     Active Substance: LOSARTAN
     Indication: HYPERTENSION

REACTIONS (9)
  - Pain [None]
  - Facial pain [None]
  - Flank pain [None]
  - Pain in extremity [None]
  - Feeling cold [None]
  - Arthralgia [None]
  - Groin pain [None]
  - Neck pain [None]
  - Aneurysm [None]

NARRATIVE: CASE EVENT DATE: 20190129
